FAERS Safety Report 8046661-X (Version None)
Quarter: 2012Q1

REPORT INFORMATION
  Report Type: 
  Country: None (occurrence: None)
  Receive Date: 20120114
  Receipt Date: 20120111
  Transmission Date: 20120608
  Serious: Yes (Other)
  Sender: FDA-Public Use
  Company Number: US-BAYER-2012-003416

PATIENT
  Age: 60 Year
  Sex: Female
  Weight: 95 kg

DRUGS (3)
  1. ALEVE (CAPLET) [Suspect]
     Indication: PAIN
     Dosage: 1 DF, BID
  2. XANAX XR [Suspect]
     Indication: PANIC DISORDER
     Dosage: 1.5 MG, BID
  3. EFFEXOR [Concomitant]
     Indication: PANIC DISORDER
     Dosage: DAILY DOSE 225 MG

REACTIONS (3)
  - INFECTION [None]
  - RHEUMATOID ARTHRITIS [None]
  - TINNITUS [None]
